FAERS Safety Report 23358202 (Version 1)
Quarter: 2024Q1

REPORT INFORMATION
  Report Type: Spontaneous
  Country: PL (occurrence: PL)
  Receive Date: 20240102
  Receipt Date: 20240102
  Transmission Date: 20240409
  Serious: Yes (Hospitalization)
  Sender: FDA-Public Use
  Company Number: None

PATIENT
  Age: 32 Year
  Sex: Male
  Weight: 80 kg

DRUGS (3)
  1. IBUPROFEN [Suspect]
     Active Substance: IBUPROFEN
     Indication: Pyrexia
     Dosage: 1 DOSAGE FORM
     Route: 048
     Dates: start: 20190430, end: 20190430
  2. NEBIVOLOL [Suspect]
     Active Substance: NEBIVOLOL
     Indication: Essential hypertension
     Dosage: 2.5 MILLIGRAM (TAKEN IN MORNING)
     Route: 048
     Dates: start: 20190307, end: 20190501
  3. RAMIPRIL [Suspect]
     Active Substance: RAMIPRIL
     Indication: Essential hypertension
     Dosage: 2.5 MILLIGRAM (TAKEN IN MORNING)
     Route: 048
     Dates: start: 20190307, end: 20190501

REACTIONS (1)
  - Erythema [Recovering/Resolving]

NARRATIVE: CASE EVENT DATE: 20190501
